FAERS Safety Report 9607326 (Version 1)
Quarter: 2013Q4

REPORT INFORMATION
  Report Type: Spontaneous
  Country: US (occurrence: None)
  Receive Date: 20131007
  Receipt Date: 20131007
  Transmission Date: 20140711
  Serious: Yes (Death)
  Sender: FDA-Public Use
  Company Number: 2013AP008498

PATIENT
  Age: 40 Year
  Sex: Female

DRUGS (5)
  1. TRAMADOL HYDROCHLORIDE [Suspect]
  2. ALPRAZOLAM [Suspect]
  3. FENTANYL [Suspect]
  4. MORPHINE [Suspect]
  5. DIAZEPAM [Suspect]

REACTIONS (1)
  - Drug abuse [None]
